FAERS Safety Report 6447490-0 (Version None)
Quarter: 2009Q4

REPORT INFORMATION
  Report Type: 
  Country: None (occurrence: None)
  Receive Date: 20091119
  Receipt Date: 20090205
  Transmission Date: 20100525
  Serious: Yes (Hospitalization)
  Sender: FDA-Public Use
  Company Number: US-AMGEN-QUU293721

PATIENT
  Sex: Female
  Weight: 98.1 kg

DRUGS (9)
  1. ENBREL [Suspect]
     Indication: RHEUMATOID ARTHRITIS
     Route: 058
     Dates: start: 20070206
  2. METHOTREXATE [Concomitant]
     Route: 048
  3. ACYCLOVIR [Concomitant]
  4. CELEBREX [Concomitant]
  5. ERYTHROMYCIN [Concomitant]
  6. FOLIC ACID [Concomitant]
     Route: 048
  7. LEVOTHROID [Concomitant]
  8. LISINOPRIL [Concomitant]
  9. ZYRTEC [Concomitant]

REACTIONS (11)
  - ABDOMINAL PAIN [None]
  - ALOPECIA [None]
  - CELLULITIS [None]
  - DYSPNOEA [None]
  - GASTROENTERITIS [None]
  - NAUSEA [None]
  - PALPITATIONS [None]
  - PULPITIS DENTAL [None]
  - RHEUMATOID ARTHRITIS [None]
  - SINUSITIS [None]
  - TOOTH ABSCESS [None]
